FAERS Safety Report 6949387-6 (Version None)
Quarter: 2010Q3

REPORT INFORMATION
  Report Type: 
  Country: None (occurrence: None)
  Receive Date: 20100828
  Receipt Date: 20100127
  Transmission Date: 20110219
  Serious: No
  Sender: FDA-Public Use
  Company Number: US-ABBOTT-09P-163-0616022-00

PATIENT
  Sex: Female

DRUGS (4)
  1. NIASPAN [Suspect]
     Indication: BLOOD CHOLESTEROL INCREASED
     Dates: start: 20091112, end: 20091216
  2. SPIRONOLACTONE [Concomitant]
     Indication: HYPERTENSION
  3. SPIRONOLACTONE [Concomitant]
     Indication: OEDEMA
  4. FOLIC ACID [Concomitant]
     Indication: VITAMIN SUPPLEMENTATION

REACTIONS (4)
  - CYSTITIS [None]
  - ERYTHEMA [None]
  - PALPITATIONS [None]
  - SKIN BURNING SENSATION [None]
